FAERS Safety Report 15299367 (Version 1)
Quarter: 2018Q3

REPORT INFORMATION
  Report Type: Report from Study
  Country: US (occurrence: US)
  Receive Date: 20180821
  Receipt Date: 20180821
  Transmission Date: 20181010
  Serious: Yes (Hospitalization)
  Sender: FDA-Public Use
  Company Number: US-ROCHE-2169616

PATIENT
  Age: 65 Year
  Sex: Female
  Weight: 46.7 kg

DRUGS (4)
  1. IBRUTINIB [Suspect]
     Active Substance: IBRUTINIB
     Indication: B-CELL LYMPHOMA
     Dosage: DAY 1 THROUGH DAY 12
     Route: 048
     Dates: start: 20180730, end: 20180809
  2. OBINUTUZUMAB. [Suspect]
     Active Substance: OBINUTUZUMAB
     Indication: B-CELL LYMPHOMA
     Dosage: 1000 MG IV ON DAYS 1 AND 2
     Route: 042
     Dates: start: 20180730, end: 20180731
  3. LENALIDOMIDE [Suspect]
     Active Substance: LENALIDOMIDE
     Indication: B-CELL LYMPHOMA
     Dosage: DAY 1 THROUGH DAY 12
     Route: 048
     Dates: start: 20180730, end: 20180809
  4. PREDNISONE. [Suspect]
     Active Substance: PREDNISONE
     Indication: B-CELL LYMPHOMA
     Dosage: DAY1?DAY7
     Route: 048
     Dates: start: 20180730, end: 20180805

REACTIONS (4)
  - Pyrexia [Unknown]
  - Hypersensitivity [Unknown]
  - Atrial fibrillation [Unknown]
  - Hypotension [Unknown]

NARRATIVE: CASE EVENT DATE: 20180809
